FAERS Safety Report 23705167 (Version 4)
Quarter: 2024Q3

REPORT INFORMATION
  Report Type: Report from Study
  Country: US (occurrence: US)
  Receive Date: 20240404
  Receipt Date: 20240806
  Transmission Date: 20241017
  Serious: Yes (Other)
  Sender: ROCHE
  Company Number: US-ROCHE-3537814

PATIENT
  Age: 32 Year
  Sex: Male
  Weight: 70.31 kg

DRUGS (3)
  1. OCREVUS [Suspect]
     Active Substance: OCRELIZUMAB
     Indication: Relapsing multiple sclerosis
     Dosage: DATE OF TREATMENTS:  19/APR/2023, 17/OCT/2023, 16/APR/2024
     Route: 065
     Dates: start: 20230419
  2. OCREVUS [Suspect]
     Active Substance: OCRELIZUMAB
     Route: 042
     Dates: start: 201706
  3. SERTRALINE [Concomitant]
     Active Substance: SERTRALINE HYDROCHLORIDE

REACTIONS (11)
  - Food poisoning [Recovered/Resolved]
  - Viral infection [Not Recovered/Not Resolved]
  - Influenza [Recovered/Resolved]
  - Diabetic ketoacidosis [Recovered/Resolved]
  - Weight decreased [Recovering/Resolving]
  - Chills [Recovered/Resolved]
  - Vomiting [Recovered/Resolved]
  - Diarrhoea [Recovering/Resolving]
  - Temperature regulation disorder [Recovering/Resolving]
  - Blood glucose increased [Recovered/Resolved]
  - COVID-19 [Unknown]

NARRATIVE: CASE EVENT DATE: 20240101
